FAERS Safety Report 14692742 (Version 1)
Quarter: 2018Q1

REPORT INFORMATION
  Report Type: Other
  Country: IN (occurrence: IN)
  Receive Date: 20180329
  Receipt Date: 20180329
  Transmission Date: 20180509
  Serious: Yes (Other)
  Sender: FDA-Public Use
  Company Number: IN-ORCHID HEALTHCARE-2044742

PATIENT
  Age: 60 Year
  Sex: Male

DRUGS (3)
  1. TRIFLUOPERAZINE [Suspect]
     Active Substance: TRIFLUOPERAZINE\TRIFLUOPERAZINE HYDROCHLORIDE
     Route: 065
  2. TRIHEXYPHENIDYL [Suspect]
     Active Substance: TRIHEXYPHENIDYL
     Route: 065
  3. OLANZAPINE. [Suspect]
     Active Substance: OLANZAPINE
     Indication: PSYCHOTIC DISORDER
     Route: 065

REACTIONS (6)
  - Muscle rigidity [Recovering/Resolving]
  - Dementia with Lewy bodies [Recovering/Resolving]
  - Bradykinesia [Recovering/Resolving]
  - Resting tremor [Recovering/Resolving]
  - Gait disturbance [Recovering/Resolving]
  - Deep vein thrombosis [Recovering/Resolving]
